FAERS Safety Report 8065725-8 (Version None)
Quarter: 2012Q1

REPORT INFORMATION
  Report Type: 
  Country: None (occurrence: None)
  Receive Date: 20120124
  Receipt Date: 20100428
  Transmission Date: 20120608
  Serious: Yes (Other)
  Sender: FDA-Public Use
  Company Number: US-ENDO PHARMACEUTICALS INC.-OXYB20110016

PATIENT
  Sex: Male

DRUGS (2)
  1. OXYBUTYNIN CHLORIDE [Suspect]
     Indication: INCONTINENCE
  2. OXYBUTYNIN CHLORIDE [Suspect]
     Indication: ENURESIS
     Route: 048
     Dates: start: 20091108, end: 20100226

REACTIONS (7)
  - ABNORMAL BEHAVIOUR [None]
  - PARAESTHESIA [None]
  - AGGRESSION [None]
  - SCREAMING [None]
  - ANGER [None]
  - SENSORY DISTURBANCE [None]
  - HYPERSENSITIVITY [None]
